FAERS Safety Report 18998808 (Version 2)
Quarter: 2021Q1

REPORT INFORMATION
  Report Type: Spontaneous
  Country: SA (occurrence: SA)
  Receive Date: 20210311
  Receipt Date: 20210312
  Transmission Date: 20210420
  Serious: Yes (Other)
  Sender: FDA-Public Use
  Company Number: SA-009507513-2103USA002386

PATIENT
  Sex: Female

DRUGS (8)
  1. CARBOPLATIN. [Suspect]
     Active Substance: CARBOPLATIN
     Indication: TRIPLE NEGATIVE BREAST CANCER
     Dosage: UNK UNK, CYCLICAL
     Dates: start: 2020, end: 2020
  2. GEMCITABINE. [Suspect]
     Active Substance: GEMCITABINE
     Dosage: UNK UNK, CYCLICAL
     Dates: start: 2020, end: 2020
  3. PACLITAXEL. [Suspect]
     Active Substance: PACLITAXEL
     Indication: TRIPLE NEGATIVE BREAST CANCER
     Dosage: UNK UNK, CYCLICAL
     Dates: start: 2020, end: 2020
  4. KEYTRUDA [Suspect]
     Active Substance: PEMBROLIZUMAB
     Indication: TRIPLE NEGATIVE BREAST CANCER
     Dosage: UNK UNK, CYCLICAL
     Dates: start: 2020, end: 2020
  5. AVASTIN [Suspect]
     Active Substance: BEVACIZUMAB
     Indication: TRIPLE NEGATIVE BREAST CANCER
     Dosage: UNK UNK, CYCLICAL
     Dates: start: 2020, end: 2020
  6. DOCETAXEL. [Suspect]
     Active Substance: DOCETAXEL
     Indication: TRIPLE NEGATIVE BREAST CANCER
     Dosage: UNK UNK, CYCLICAL
     Dates: start: 2020, end: 2020
  7. DOCETAXEL. [Suspect]
     Active Substance: DOCETAXEL
     Dosage: UNK
     Dates: start: 20201001, end: 20201001
  8. GEMCITABINE. [Suspect]
     Active Substance: GEMCITABINE
     Indication: TRIPLE NEGATIVE BREAST CANCER
     Dosage: UNK UNK, CYCLICAL
     Dates: start: 2020, end: 2020

REACTIONS (5)
  - Therapy non-responder [Not Recovered/Not Resolved]
  - Necrosis [Unknown]
  - Drug intolerance [Unknown]
  - Wound infection pseudomonas [Recovering/Resolving]
  - Malignant neoplasm progression [Not Recovered/Not Resolved]

NARRATIVE: CASE EVENT DATE: 2020
